FAERS Safety Report 5846247-9 (Version None)
Quarter: 2008Q3

REPORT INFORMATION
  Report Type: 
  Country: None (occurrence: None)
  Receive Date: 20080813
  Receipt Date: 20080808
  Transmission Date: 20090109
  Serious: Yes (Other)
  Sender: FDA-Public Use
  Company Number: 2008SP007972

PATIENT
  Age: 62 Year
  Sex: Male
  Weight: 92 kg

DRUGS (3)
  1. INTRON A [Suspect]
     Indication: MALIGNANT MELANOMA
     Dosage: 20 MIU;, 10 MIU;
     Dates: start: 20071008, end: 20071114
  2. INTRON A [Suspect]
     Indication: MALIGNANT MELANOMA
     Dosage: 20 MIU;, 10 MIU;
     Dates: start: 20080114
  3. DIABEX [Concomitant]

REACTIONS (6)
  - ADVERSE DRUG REACTION [None]
  - DYSGEUSIA [None]
  - FATIGUE [None]
  - RASH [None]
  - RENAL CANCER [None]
  - WEIGHT DECREASED [None]
